FAERS Safety Report 8088918-2 (Version None)
Quarter: 2012Q1

REPORT INFORMATION
  Report Type: 
  Country: None (occurrence: None)
  Receive Date: 20120128
  Receipt Date: 20110701
  Transmission Date: 20120608
  Serious: No
  Sender: FDA-Public Use
  Company Number: US-ABBOTT-10P-163-0639920-00

PATIENT
  Sex: Female
  Weight: 68.1 kg

DRUGS (3)
  1. TYLENOL W/ CODEINE NO. 3 [Concomitant]
     Indication: BACK PAIN
     Dosage: 1-2 TABLETS EVERY 12 HOURS PRN
     Route: 048
  2. UNKNOWN BLOOD PRESSURE MEDICATION [Concomitant]
     Indication: HYPERTENSION
     Route: 048
  3. HUMIRA [Suspect]
     Indication: RHEUMATOID ARTHRITIS
     Dates: start: 20050101

REACTIONS (3)
  - URINARY TRACT INFECTION [None]
  - OROPHARYNGEAL PAIN [None]
  - RENAL PAIN [None]
